FAERS Safety Report 7081919-2 (Version None)
Quarter: 2010Q4

REPORT INFORMATION
  Report Type: 
  Country: None (occurrence: None)
  Receive Date: 20101103
  Receipt Date: 20101027
  Transmission Date: 20110411
  Serious: Yes (Death)
  Sender: FDA-Public Use
  Company Number: IN-PFIZER INC-2010131486

PATIENT
  Age: 34 Year
  Sex: Female

DRUGS (1)
  1. MAGNEX [Suspect]
     Indication: INFECTION
     Dosage: 1 G, UNK
     Route: 042
     Dates: start: 20101014, end: 20101015

REACTIONS (1)
  - ANAPHYLACTIC SHOCK [None]
